FAERS Safety Report 14926629 (Version 1)
Quarter: 2018Q2

REPORT INFORMATION
  Report Type: Spontaneous
  Country: FR (occurrence: FR)
  Receive Date: 20180523
  Receipt Date: 20180523
  Transmission Date: 20180711
  Serious: Yes (Other)
  Sender: FDA-Public Use
  Company Number: FR-MERCK KGAA-2048269

PATIENT
  Age: 61 Year
  Sex: Female
  Weight: 67 kg

DRUGS (1)
  1. NOVOTHYROX [Suspect]
     Active Substance: LEVOTHYROXINE SODIUM
     Indication: POST PROCEDURAL HYPOTHYROIDISM
     Route: 048
     Dates: start: 20170505

REACTIONS (34)
  - Musculoskeletal stiffness [Recovered/Resolved]
  - Flatulence [None]
  - Thirst [None]
  - Weight increased [Recovered/Resolved]
  - Joint stiffness [Recovered/Resolved]
  - Onychoclasis [None]
  - Gait disturbance [None]
  - Social avoidant behaviour [None]
  - Loss of personal independence in daily activities [None]
  - Blood thyroid stimulating hormone decreased [None]
  - Aggression [None]
  - Irritability [Recovered/Resolved]
  - Alopecia [Recovered/Resolved]
  - Headache [Recovered/Resolved]
  - Mood swings [None]
  - Feeling abnormal [None]
  - Eructation [None]
  - Hot flush [Recovered/Resolved]
  - Tremor [None]
  - Suicidal ideation [Recovered/Resolved]
  - Arthralgia [Recovered/Resolved]
  - Decreased activity [None]
  - Peripheral swelling [None]
  - Nausea [Recovered/Resolved]
  - Muscle spasms [Recovered/Resolved]
  - Feeling cold [Recovered/Resolved]
  - Vertigo [Recovered/Resolved]
  - Abdominal pain upper [Recovered/Resolved]
  - Amnesia [None]
  - Eating disorder [None]
  - Fatigue [Recovered/Resolved]
  - Diarrhoea [Recovered/Resolved]
  - Insomnia [Recovered/Resolved]
  - Thyroxine free increased [None]

NARRATIVE: CASE EVENT DATE: 20170505
